FAERS Safety Report 7794452-7 (Version None)
Quarter: 2011Q4

REPORT INFORMATION
  Report Type: 
  Country: None (occurrence: None)
  Receive Date: 20111004
  Receipt Date: 20110927
  Transmission Date: 20120403
  Serious: Yes (Hospitalization, Congenital Anomaly)
  Sender: FDA-Public Use
  Company Number: FR-BRISTOL-MYERS SQUIBB COMPANY-16113003

PATIENT
  Age: 4 Day
  Sex: Male
  Weight: 4 kg

DRUGS (4)
  1. ABILIFY [Suspect]
     Route: 064
     Dates: end: 20110401
  2. IMOVANE [Suspect]
     Route: 064
     Dates: end: 20110401
  3. TERCIAN [Suspect]
     Route: 064
     Dates: end: 20110401
  4. ESCITALOPRAM OXALATE [Suspect]
     Dates: end: 20110401

REACTIONS (2)
  - HYPOTONIA NEONATAL [None]
  - DYSMORPHISM [None]
